FAERS Safety Report 8761197 (Version 10)
Quarter: 2016Q3

REPORT INFORMATION
  Report Type: Spontaneous
  Country: US (occurrence: US)
  Receive Date: 20120830
  Receipt Date: 20160921
  Transmission Date: 20161109
  Serious: Yes (Hospitalization, Disabling, Other)
  Sender: FDA-Public Use
  Company Number: US-009507513-1208USA008533

PATIENT
  Sex: Female
  Weight: 134 kg

DRUGS (6)
  1. CENTRUM SILVER [Concomitant]
     Active Substance: MINERALS\VITAMINS
     Dosage: 1 DF, QD
     Route: 065
     Dates: start: 1990
  2. FOSAMAX [Suspect]
     Active Substance: ALENDRONATE SODIUM
     Indication: OSTEOPOROSIS
     Dosage: UNK
     Route: 048
     Dates: start: 1999, end: 2006
  3. NEXIUM [Concomitant]
     Active Substance: ESOMEPRAZOLE MAGNESIUM
     Indication: GASTROOESOPHAGEAL REFLUX DISEASE
     Dosage: UNK
     Route: 065
     Dates: start: 1997, end: 2008
  4. RABEPRAZOLE SODIUM. [Concomitant]
     Active Substance: RABEPRAZOLE SODIUM
     Dosage: UNK
     Route: 065
     Dates: start: 1999, end: 2007
  5. GERITOL COMPLETE [Concomitant]
     Dosage: 1 UNK, UNK
     Route: 065
     Dates: start: 1990
  6. CORTICOSTEROIDS (UNSPECIFIED) [Concomitant]
     Active Substance: UNSPECIFIED INGREDIENT
     Dosage: UNK
     Route: 065
     Dates: start: 1995, end: 2006

REACTIONS (30)
  - Anxiety [Unknown]
  - Fall [Unknown]
  - Obesity [Unknown]
  - Lumbar spinal stenosis [Unknown]
  - Oral herpes [Unknown]
  - Osteoarthritis [Unknown]
  - Hand fracture [Unknown]
  - Asthenia [Unknown]
  - Arthralgia [Unknown]
  - Anaemia postoperative [Unknown]
  - Nephropathy [Unknown]
  - Femur fracture [Recovered/Resolved]
  - Fractured coccyx [Unknown]
  - Injury [Unknown]
  - Ligament sprain [Unknown]
  - Cardiac failure congestive [Unknown]
  - Gingival disorder [Unknown]
  - Asthma [Unknown]
  - Hypercholesterolaemia [Unknown]
  - Hand fracture [Unknown]
  - Contusion [Unknown]
  - Osteoarthritis [Unknown]
  - Lung disorder [Unknown]
  - Arthralgia [Unknown]
  - Urinary tract infection [Unknown]
  - Rib fracture [Unknown]
  - Osteoarthritis [Unknown]
  - Scar pain [Unknown]
  - Dental caries [Unknown]
  - Skin abrasion [Unknown]

NARRATIVE: CASE EVENT DATE: 2002
